FAERS Safety Report 23167330 (Version 6)
Quarter: 2023Q4

REPORT INFORMATION
  Report Type: Report from Study
  Country: US (occurrence: US)
  Receive Date: 20231109
  Receipt Date: 20231211
  Transmission Date: 20240109
  Serious: Yes (Other)
  Sender: FDA-Public Use
  Company Number: US-ALXN-202311USA000039US

PATIENT
  Sex: Female

DRUGS (1)
  1. STRENSIQ [Suspect]
     Active Substance: ASFOTASE ALFA
     Indication: Hypophosphatasia
     Dosage: 152 MILLIGRAM, TIW
     Route: 058
     Dates: start: 20231024, end: 20231114

REACTIONS (16)
  - Suicidal ideation [Recovered/Resolved]
  - Depression [Recovered/Resolved]
  - Swelling face [Unknown]
  - Dizziness [Recovered/Resolved]
  - Blood pressure increased [Recovering/Resolving]
  - Fall [Unknown]
  - General physical health deterioration [Unknown]
  - Balance disorder [Unknown]
  - Nausea [Unknown]
  - Asthenia [Unknown]
  - Cough [Unknown]
  - Swelling face [Unknown]
  - Peripheral swelling [Unknown]
  - Abdominal distension [Unknown]
  - Decreased activity [Unknown]
  - Depression [Recovered/Resolved]

NARRATIVE: CASE EVENT DATE: 20231101
